FAERS Safety Report 7908386-8 (Version None)
Quarter: 2011Q4

REPORT INFORMATION
  Report Type: 
  Country: None (occurrence: None)
  Receive Date: 20111111
  Receipt Date: 20111102
  Transmission Date: 20120403
  Serious: Yes (Hospitalization, Other)
  Sender: FDA-Public Use
  Company Number: FR-JNJFOC-20111103160

PATIENT
  Age: 91 Year
  Sex: Male

DRUGS (19)
  1. BISOPROLOL FUMARATE AND HYDROCHLOROTHIAZIDE [Concomitant]
     Route: 065
  2. PHYSIOTENS [Concomitant]
     Route: 065
  3. NICARDIPINE HCL [Concomitant]
     Route: 065
  4. RAMIPRIL [Concomitant]
     Route: 065
  5. BETAHISTINE [Concomitant]
     Route: 065
  6. NEXIUM [Concomitant]
  7. DURAGESIC-100 [Suspect]
     Indication: PRODUCT USED FOR UNKNOWN INDICATION
     Route: 062
  8. ALLOPURINOL [Concomitant]
     Route: 065
  9. MORPHINE [Suspect]
     Route: 062
  10. PREVISCAN (FLUINDIONE) [Concomitant]
     Route: 065
  11. ATORVASTATIN CALCIUM [Concomitant]
     Route: 065
  12. DURAGESIC-100 [Suspect]
     Route: 062
     Dates: end: 20110228
  13. FERROUS SULFATE TAB [Concomitant]
     Route: 065
  14. FUROSEMIDE [Concomitant]
     Route: 065
  15. MORPHINE [Suspect]
     Indication: PRODUCT USED FOR UNKNOWN INDICATION
     Route: 062
  16. MORPHINE [Suspect]
     Route: 062
  17. TANGANIL [Concomitant]
     Route: 065
  18. DURAGESIC-100 [Suspect]
     Route: 062
  19. VOLTAREN [Concomitant]
     Route: 065

REACTIONS (10)
  - AGITATION [None]
  - IMPAIRED SELF-CARE [None]
  - DECREASED APPETITE [None]
  - HALLUCINATION [None]
  - RENAL FAILURE [None]
  - OVERDOSE [None]
  - CONFUSIONAL STATE [None]
  - GENERAL PHYSICAL HEALTH DETERIORATION [None]
  - PAIN [None]
  - HYPOPNOEA [None]
